FAERS Safety Report 17876345 (Version 1)
Quarter: 2020Q2

REPORT INFORMATION
  Report Type: Report from Study
  Country: NL (occurrence: NL)
  Receive Date: 20200609
  Receipt Date: 20200609
  Transmission Date: 20200714
  Serious: Yes (Other)
  Sender: FDA-Public Use
  Company Number: NL-MYLANLABS-2020M1054782

PATIENT
  Age: 75 Year
  Sex: Female

DRUGS (3)
  1. XGEVA [Suspect]
     Active Substance: DENOSUMAB
     Indication: PROPHYLAXIS
     Dosage: 120 MILLIGRAM, Q4WK, INJLQD 70MG/ML FLACON 1,7ML,
     Route: 042
  2. CETOMACROGOL 1000 [Concomitant]
     Dosage: WITH VASELINE 10%
  3. TRASTUZUMAB. [Suspect]
     Active Substance: TRASTUZUMAB
     Indication: PRODUCT USED FOR UNKNOWN INDICATION
     Dosage: 150 MILLIGRAM,  INF
     Route: 065

REACTIONS (5)
  - Pain in extremity [Unknown]
  - Fall [Unknown]
  - Contusion [Unknown]
  - Metastasis [Unknown]
  - Peripheral swelling [Unknown]

NARRATIVE: CASE EVENT DATE: 2020
